FAERS Safety Report 7115040-1 (Version None)
Quarter: 2010Q4

REPORT INFORMATION
  Report Type: 
  Country: None (occurrence: None)
  Receive Date: 20101122
  Receipt Date: 20101116
  Transmission Date: 20110411
  Serious: Yes (Other)
  Sender: FDA-Public Use
  Company Number: US-BAYER-201041694NA

PATIENT
  Sex: Female

DRUGS (1)
  1. AVELOX [Suspect]
     Indication: EAR INFECTION
     Dates: start: 20091110

REACTIONS (3)
  - NEUROPATHY PERIPHERAL [None]
  - PAIN [None]
  - UNEVALUABLE EVENT [None]
